FAERS Safety Report 7269764-6 (Version None)
Quarter: 2011Q1

REPORT INFORMATION
  Report Type: 
  Country: None (occurrence: None)
  Receive Date: 20110124
  Receipt Date: 20110112
  Transmission Date: 20110831
  Serious: Yes (Hospitalization, Other)
  Sender: FDA-Public Use
  Company Number: 2010JP006825

PATIENT
  Age: 3 Year
  Sex: Male

DRUGS (11)
  1. CICLOSPORIN (CICLOSPORIN) PER ORAL NOS [Suspect]
     Indication: LIVER TRANSPLANT
     Dosage: ORAL
     Route: 048
     Dates: start: 20100326
  2. ORAP [Suspect]
     Indication: RESTLESSNESS
     Dosage: 1.5 MG, /D, ORAL; 1 MG, UID/QD, ORAL
     Route: 048
     Dates: start: 20100329, end: 20100406
  3. ORAP [Suspect]
     Indication: RESTLESSNESS
     Dosage: 1.5 MG, /D, ORAL; 1 MG, UID/QD, ORAL
     Route: 048
     Dates: start: 20100407, end: 20100502
  4. CONTOMIN (CHLORPROMAIINE HYDROCHLORIDE) INJECTION [Suspect]
     Indication: RESTLESSNESS
     Dosage: 3 MG, UID/QD, INTRAMUSCULAR
     Route: 030
     Dates: start: 20100328, end: 20100329
  5. SOL-MELCORT (METHYLPREDISOLONE SODIUM SUCCINATE) [Concomitant]
  6. PROGRAF [Suspect]
     Indication: LIVER TRANSPLANT
     Dosage: ORAL; ORAL
     Route: 048
     Dates: start: 20100325, end: 20100326
  7. PROGRAF [Suspect]
     Indication: LIVER TRANSPLANT
     Dosage: ORAL; ORAL
     Route: 048
     Dates: start: 20091101, end: 20100324
  8. ZONISAMIDE [Concomitant]
  9. PRECEDEX [Concomitant]
  10. MIDAZOLAM HCL [Concomitant]
  11. NICARDIPINE (NICARDIPINE HYDROCHLORIDE) [Concomitant]

REACTIONS (4)
  - CENTRAL NERVOUS SYSTEM LESION [None]
  - TOXIC ENCEPHALOPATHY [None]
  - PARKINSONISM [None]
  - CONVULSION [None]
